FAERS Safety Report 15466850 (Version 8)
Quarter: 2019Q1

REPORT INFORMATION
  Report Type: Report from Study
  Country: JP (occurrence: JP)
  Receive Date: 20181005
  Receipt Date: 20190304
  Transmission Date: 20190417
  Serious: Yes (Hospitalization)
  Sender: FDA-Public Use
  Company Number: JP-ROCHE-2192792

PATIENT
  Age: 53 Year
  Sex: Male
  Weight: 81.5 kg

DRUGS (32)
  1. CARBOCISTEINE [Concomitant]
     Active Substance: CARBOCYSTEINE
     Indication: UPPER RESPIRATORY TRACT INFECTION
     Route: 065
     Dates: start: 20180924, end: 20180927
  2. LOXOPROFEN SODIUM [Concomitant]
     Active Substance: LOXOPROFEN SODIUM
     Indication: MUSCULOSKELETAL PAIN
     Route: 065
     Dates: start: 20181010
  3. ALBUMIN TANNATE [Concomitant]
     Active Substance: ALBUMIN BOVINE\TANNIC ACID
     Indication: DIARRHOEA
     Route: 065
     Dates: start: 20181006, end: 20181010
  4. ULCERLMIN [Concomitant]
     Active Substance: SUCRALFATE
     Route: 065
     Dates: start: 20181030, end: 20181105
  5. SP TROCHES [Concomitant]
     Active Substance: DEQUALINIUM CHLORIDE
     Indication: DYSPHONIA
     Route: 065
     Dates: start: 20181226, end: 20190120
  6. LEVOFLOXACIN. [Concomitant]
     Active Substance: LEVOFLOXACIN
     Indication: UPPER RESPIRATORY TRACT INFECTION
     Route: 065
     Dates: start: 20180926, end: 20180927
  7. LOXOPROFEN SODIUM [Concomitant]
     Active Substance: LOXOPROFEN SODIUM
     Indication: UPPER RESPIRATORY TRACT INFECTION
     Route: 065
     Dates: start: 20180927, end: 20181016
  8. SAWACILLIN [Concomitant]
     Active Substance: AMOXICILLIN
     Route: 065
     Dates: start: 20181003, end: 20181005
  9. SOLYUGEN G [Concomitant]
     Route: 065
     Dates: start: 20180927, end: 20180930
  10. RIMEFA 3B INJECTION [Concomitant]
     Route: 065
     Dates: start: 20180928, end: 20180930
  11. AZUNOL GARGLE LIQUID [Concomitant]
     Indication: UPPER RESPIRATORY TRACT INFECTION
     Route: 065
     Dates: start: 20181001, end: 20181017
  12. ZITHROMAC [Concomitant]
     Active Substance: AZITHROMYCIN DIHYDRATE
     Indication: PYREXIA
     Route: 065
     Dates: start: 20181030, end: 20181102
  13. ADALAT CC [Concomitant]
     Active Substance: NIFEDIPINE
     Indication: HYPERTENSION
     Route: 065
     Dates: end: 20181203
  14. TENOZET [Concomitant]
     Active Substance: TENOFOVIR DISOPROXIL FUMARATE
     Indication: CHRONIC HEPATITIS B
     Route: 065
     Dates: start: 20180507
  15. SAWACILLIN [Concomitant]
     Active Substance: AMOXICILLIN
     Indication: UPPER RESPIRATORY TRACT INFECTION
     Route: 065
     Dates: start: 20180927, end: 20180928
  16. KN NO.1 [Concomitant]
     Route: 065
     Dates: start: 20180927, end: 20180927
  17. CEFAZOLIN NA [Concomitant]
     Active Substance: CEFAZOLIN SODIUM
     Indication: UPPER RESPIRATORY TRACT INFECTION
     Route: 065
     Dates: start: 20181005, end: 20181012
  18. MIYA-BM [Concomitant]
     Active Substance: CLOSTRIDIUM BUTYRICUM SPORES STRAIN M-55
     Indication: ABDOMINAL DISTENSION
     Route: 065
     Dates: start: 20190204
  19. REBAMIPIDE [Concomitant]
     Active Substance: REBAMIPIDE
     Route: 065
     Dates: start: 20180927, end: 20180930
  20. RABEPRAZOLE NA [Concomitant]
     Active Substance: RABEPRAZOLE SODIUM
     Route: 065
     Dates: start: 20181001, end: 20181030
  21. ATEZOLIZUMAB. [Suspect]
     Active Substance: ATEZOLIZUMAB
     Indication: HEPATOCELLULAR CARCINOMA
     Dosage: ON 10/SEP/2018, HE RECEIVED THE MOST RECENT DOSE OF ATEZOLIZUMAB PRIOR TO EVENT ONSET.
     Route: 042
     Dates: start: 20180910
  22. CALONAL [Concomitant]
     Active Substance: ACETAMINOPHEN
     Indication: UPPER RESPIRATORY TRACT INFECTION
     Route: 065
     Dates: start: 20180924, end: 20180930
  23. LOXOPROFEN SODIUM [Concomitant]
     Active Substance: LOXOPROFEN SODIUM
     Indication: PYREXIA
     Route: 065
     Dates: start: 20181026, end: 20181030
  24. UNASYN [Concomitant]
     Active Substance: AMPICILLIN SODIUM\SULBACTAM SODIUM
     Indication: UPPER RESPIRATORY TRACT INFECTION
     Route: 065
     Dates: start: 20180927, end: 20181003
  25. LOPEMIN (JAPAN) [Concomitant]
     Route: 065
     Dates: start: 20181006, end: 20181010
  26. BEVACIZUMAB. [Suspect]
     Active Substance: BEVACIZUMAB
     Indication: HEPATOCELLULAR CARCINOMA
     Dosage: ON 10/SEP/2018, HE RECEIVED THE MOST RECENT DOSE OF BEVACIZUMAB (1220MG) PRIOR TO EVENT ONSET.
     Route: 042
     Dates: start: 20180910
  27. HISINALC [Concomitant]
     Route: 065
     Dates: start: 20180925, end: 20180925
  28. ACELIO [Concomitant]
     Active Substance: ACETAMINOPHEN
     Indication: UPPER RESPIRATORY TRACT INFECTION
     Route: 042
     Dates: start: 20180927, end: 20180929
  29. MEDICON (DEXTROMETHORPHAN HYDROBROMIDE) [Concomitant]
     Active Substance: DEXTROMETHORPHAN HYDROBROMIDE
     Indication: UPPER RESPIRATORY TRACT INFECTION
     Route: 065
     Dates: start: 20180924, end: 20180928
  30. CEFTRIAXONE SODIUM. [Concomitant]
     Active Substance: CEFTRIAXONE SODIUM
     Indication: UPPER RESPIRATORY TRACT INFECTION
     Route: 065
     Dates: start: 20180925, end: 20180925
  31. ENTERONON-R [Concomitant]
     Active Substance: PROBIOTICS NOS
     Route: 065
     Dates: start: 20181001, end: 20181103
  32. AZUNOL OINTMENT [Concomitant]
     Indication: SKIN EXFOLIATION
     Route: 065
     Dates: start: 20180929, end: 20180930

REACTIONS (1)
  - VIth nerve disorder [Recovered/Resolved]

NARRATIVE: CASE EVENT DATE: 20180926
